FAERS Safety Report 4735804-9 (Version None)
Quarter: 2005Q3

REPORT INFORMATION
  Report Type: 
  Country: None (occurrence: None)
  Receive Date: 20050721
  Receipt Date: 20050428
  Transmission Date: 20060218
  Serious: No
  Sender: FDA-Public Use
  Company Number: 2005SP000445

PATIENT
  Age: 77 Year
  Sex: Female

DRUGS (4)
  1. LUNESTA [Suspect]
     Dosage: 3 MG; ORAL
     Route: 048
     Dates: start: 20050427
  2. HALCION [Concomitant]
  3. RESTORIL [Concomitant]
  4. AMBIEN [Concomitant]

REACTIONS (1)
  - INSOMNIA [None]
